FAERS Safety Report 4443548-6 (Version None)
Quarter: 2004Q3

REPORT INFORMATION
  Report Type: 
  Country: None (occurrence: None)
  Receive Date: 20040901
  Receipt Date: 20040820
  Transmission Date: 20050211
  Serious: Yes (Other)
  Sender: FDA-Public Use
  Company Number: S04-USA-02766-01

PATIENT
  Age: 87 Year
  Sex: Male
  Weight: 83.4619 kg

DRUGS (12)
  1. LEXAPRO [Suspect]
     Indication: DEPRESSION
     Dosage: 5 MG QD PO
     Route: 048
     Dates: start: 20040217, end: 20040505
  2. BUSPIRONE [Concomitant]
  3. DOXOZOSIN [Concomitant]
  4. EXELON [Concomitant]
  5. FUROSEMIDE [Concomitant]
  6. MIRTAZAPINE [Concomitant]
  7. NITRO-DUR [Concomitant]
  8. PLAVIX [Concomitant]
  9. POTASSIUM CHLORIDE [Concomitant]
  10. SOTALOL HCL [Concomitant]
  11. SYNTHROID [Concomitant]
  12. VITAMIN C [Concomitant]

REACTIONS (1)
  - COMA [None]
